FAERS Safety Report 6814033-9 (Version None)
Quarter: 2010Q3

REPORT INFORMATION
  Report Type: 
  Country: None (occurrence: None)
  Receive Date: 20100702
  Receipt Date: 20100622
  Transmission Date: 20110219
  Serious: Yes (Other)
  Sender: FDA-Public Use
  Company Number: PHHY2010BR13196

PATIENT
  Sex: Female
  Weight: 54 kg

DRUGS (7)
  1. EXELON [Suspect]
     Indication: DEMENTIA ALZHEIMER'S TYPE
     Dosage: 9.5 MG, QD
     Route: 062
     Dates: start: 20091101, end: 20100201
  2. EXELON [Suspect]
     Indication: HYDROCEPHALUS
     Dosage: 27MG/15CM2 ONE DAY, 18MG/10CM2 THE FOLLOWING DAY
     Route: 062
     Dates: start: 20100201, end: 20100215
  3. EXELON [Suspect]
     Dosage: 13.3 MG, QD
     Route: 062
     Dates: start: 20100215, end: 20100228
  4. EXELON [Suspect]
     Dosage: 9.5 MG, QD
  5. SYNTHROID [Concomitant]
     Indication: THYROID DISORDER
     Dosage: 125 UG PER DAY
     Route: 048
     Dates: start: 20040101
  6. GLIMEPIRIDE [Concomitant]
     Indication: DIABETES MELLITUS
     Dosage: 4 MG PER DAY
     Route: 048
     Dates: start: 20060101
  7. TAMOXIFEN CITRATE [Concomitant]
     Indication: POSTOPERATIVE CARE
     Dosage: 20 MG PER DAY
     Route: 048
     Dates: start: 19980101

REACTIONS (6)
  - BLOOD PRESSURE INCREASED [None]
  - DIZZINESS [None]
  - HEART RATE INCREASED [None]
  - INCORRECT DOSE ADMINISTERED [None]
  - TREMOR [None]
  - VOMITING [None]
